FAERS Safety Report 13695837 (Version 7)
Quarter: 2017Q4

REPORT INFORMATION
  Report Type: Report from Study
  Country: None (occurrence: US)
  Receive Date: 20170627
  Receipt Date: 20171205
  Transmission Date: 20180320
  Serious: Yes (Hospitalization)
  Sender: FDA-Public Use
  Company Number: US-ABBVIE-17K-163-1945983-00

PATIENT
  Age: 78 Year
  Sex: Female

DRUGS (3)
  1. IRON [Suspect]
     Active Substance: IRON
     Indication: PRODUCT USED FOR UNKNOWN INDICATION
     Route: 065
  2. HUMIRA [Suspect]
     Active Substance: ADALIMUMAB
     Indication: COLITIS ULCERATIVE
     Route: 058
     Dates: start: 20170402, end: 20170402
  3. HUMIRA [Suspect]
     Active Substance: ADALIMUMAB
     Route: 058
     Dates: start: 201706, end: 2017

REACTIONS (17)
  - Faeces discoloured [Not Recovered/Not Resolved]
  - Perforated ulcer [Recovering/Resolving]
  - Clostridium difficile infection [Recovered/Resolved]
  - Night sweats [Recovering/Resolving]
  - Alopecia [Unknown]
  - Clostridium difficile infection [Recovering/Resolving]
  - Gait disturbance [Unknown]
  - Productive cough [Not Recovered/Not Resolved]
  - Food allergy [Unknown]
  - Injection site bruising [Not Recovered/Not Resolved]
  - Drug ineffective [Unknown]
  - Rhinorrhoea [Not Recovered/Not Resolved]
  - Hernia [Unknown]
  - Bowel movement irregularity [Unknown]
  - Injection site pain [Unknown]
  - Pneumonia [Not Recovered/Not Resolved]
  - Underdose [Unknown]

NARRATIVE: CASE EVENT DATE: 2017
